FAERS Safety Report 17998478 (Version 1)
Quarter: 2020Q3

REPORT INFORMATION
  Report Type: Spontaneous
  Country: US (occurrence: US)
  Receive Date: 20200708
  Receipt Date: 20200708
  Transmission Date: 20201103
  Serious: No
  Sender: FDA-Public Use
  Company Number: None

PATIENT
  Age: 29 Year
  Sex: Male

DRUGS (1)
  1. TRIUMEQ [Suspect]
     Active Substance: ABACAVIR SULFATE\DOLUTEGRAVIR SODIUM\LAMIVUDINE
     Dosage: ?          OTHER DOSE:600?50?300;?
     Route: 048
     Dates: start: 201507, end: 202007

REACTIONS (4)
  - Blood cholesterol increased [None]
  - Abdominal pain [None]
  - Nightmare [None]
  - Weight increased [None]

NARRATIVE: CASE EVENT DATE: 20200705
